FAERS Safety Report 9160838 (Version 2)
Quarter: 2013Q1

REPORT INFORMATION
  Report Type: Spontaneous
  Country: CA (occurrence: CA)
  Receive Date: 20130313
  Receipt Date: 20130320
  Transmission Date: 20140127
  Serious: Yes (Hospitalization, Other)
  Sender: FDA-Public Use
  Company Number: CA-VERTEX PHARMACEUTICALS INC.-2013-003400

PATIENT
  Age: 64 None
  Sex: Male

DRUGS (6)
  1. INCIVEK [Suspect]
     Indication: HEPATITIS C
     Dosage: UNK
     Dates: start: 20120718, end: 20121010
  2. PEGASYS [Suspect]
     Indication: HEPATITIS C
     Dosage: 90 ?G, UNK
     Route: 058
     Dates: end: 20130309
  3. RIBAVIRIN [Suspect]
     Indication: HEPATITIS C
     Dosage: 200 MG, UNK
     Route: 048
     Dates: end: 20130309
  4. AVALIDE [Concomitant]
  5. IMOVANE [Concomitant]
  6. CALCIUM [Concomitant]

REACTIONS (7)
  - Abdominal abscess [Not Recovered/Not Resolved]
  - Pleural effusion [Not Recovered/Not Resolved]
  - Ascites [Not Recovered/Not Resolved]
  - Urine output decreased [Unknown]
  - Dialysis [Unknown]
  - Blood creatinine increased [Unknown]
  - Haemoglobin decreased [Unknown]
